FAERS Safety Report 25337523 (Version 3)
Quarter: 2025Q2

REPORT INFORMATION
  Report Type: Report from Study
  Country: ES (occurrence: ES)
  Receive Date: 20250520
  Receipt Date: 20250625
  Transmission Date: 20250717
  Serious: Yes (Hospitalization, Other)
  Sender: MYLAN
  Company Number: ES-ELI_LILLY_AND_COMPANY-ES202504002943

PATIENT
  Age: 52 Year
  Sex: Female

DRUGS (7)
  1. TAMOXIFEN [Suspect]
     Active Substance: TAMOXIFEN
     Indication: Breast cancer
  2. ABEMACICLIB [Suspect]
     Active Substance: ABEMACICLIB
     Indication: Breast cancer
     Dosage: 150 MILLIGRAM, BID (300 MILLIGRAM, QD)
     Dates: start: 202403
  3. ABEMACICLIB [Suspect]
     Active Substance: ABEMACICLIB
     Dosage: 150 MILLIGRAM, BID (300 MILLIGRAM, QD)
  4. ABEMACICLIB [Suspect]
     Active Substance: ABEMACICLIB
  5. LETROZOLE [Concomitant]
     Active Substance: LETROZOLE
     Indication: Product used for unknown indication
  6. EXEMESTANE [Concomitant]
     Active Substance: EXEMESTANE
     Indication: Product used for unknown indication
  7. Chondrosan [Concomitant]
     Indication: Product used for unknown indication

REACTIONS (24)
  - Decreased immune responsiveness [Recovered/Resolved]
  - Anal fissure [Recovering/Resolving]
  - Platelet count decreased [Recovered/Resolved]
  - Hair growth abnormal [Recovering/Resolving]
  - Onychoclasis [Recovering/Resolving]
  - Onychomycosis [Recovering/Resolving]
  - Nail injury [Recovering/Resolving]
  - Contusion [Recovering/Resolving]
  - Haemorrhoids [Recovering/Resolving]
  - Weight increased [Recovering/Resolving]
  - Abdominal pain upper [Recovering/Resolving]
  - Tachycardia [Recovering/Resolving]
  - Abdominal distension [Recovering/Resolving]
  - Tension [Recovering/Resolving]
  - Stress [Recovering/Resolving]
  - Ovarian disorder [Recovering/Resolving]
  - Daydreaming [Recovering/Resolving]
  - Dry skin [Recovering/Resolving]
  - Pruritus [Recovering/Resolving]
  - Swelling [Recovering/Resolving]
  - Fatigue [Recovering/Resolving]
  - White blood cell count decreased [Recovered/Resolved]
  - Alopecia [Recovering/Resolving]
  - Diarrhoea [Recovering/Resolving]
